FAERS Safety Report 16478153 (Version 1)
Quarter: 2019Q2

REPORT INFORMATION
  Report Type: Spontaneous
  Country: SE (occurrence: SE)
  Receive Date: 20190626
  Receipt Date: 20190626
  Transmission Date: 20190711
  Serious: Yes (Hospitalization, Other)
  Sender: FDA-Public Use
  Company Number: SE-ALEMBIC PHARMACUETICALS LIMITED-2019SCAL000401

PATIENT
  Age: 48 Year
  Sex: Male

DRUGS (2)
  1. NOREPINEPHRINE. [Suspect]
     Active Substance: NOREPINEPHRINE
     Indication: BLOOD PRESSURE DECREASED
     Dosage: UNK
     Route: 042
  2. VENLAFAXINE [Suspect]
     Active Substance: VENLAFAXINE HYDROCHLORIDE
     Indication: PRODUCT USED FOR UNKNOWN INDICATION
     Dosage: 20 GRAM

REACTIONS (13)
  - Drug level increased [Recovered/Resolved]
  - Poor peripheral circulation [Recovered/Resolved]
  - Drug interaction [Recovered/Resolved]
  - Lactic acidosis [Recovered/Resolved]
  - Ejection fraction decreased [Recovering/Resolving]
  - Somnolence [Recovered/Resolved]
  - Overdose [Recovered/Resolved]
  - Cardiac arrest [Recovered/Resolved]
  - Loss of consciousness [Recovered/Resolved]
  - Toxicity to various agents [Recovered/Resolved]
  - Stress cardiomyopathy [Recovering/Resolving]
  - Generalised tonic-clonic seizure [Recovered/Resolved]
  - Blood pressure decreased [Recovered/Resolved]
